FAERS Safety Report 24143015 (Version 2)
Quarter: 2024Q4

REPORT INFORMATION
  Report Type: Spontaneous
  Country: JP (occurrence: JP)
  Receive Date: 20240726
  Receipt Date: 20241111
  Transmission Date: 20250114
  Serious: Yes (Death, Hospitalization)
  Sender: EISAI
  Company Number: JP-Eisai-202405164_LEN-HCC_P_1

PATIENT
  Age: 76 Year
  Sex: Male

DRUGS (1)
  1. LENVATINIB [Suspect]
     Active Substance: LENVATINIB
     Indication: Hepatocellular carcinoma
     Dosage: DOSE AND FREQUENCY UNKNOWN
     Route: 048

REACTIONS (5)
  - Interstitial lung disease [Fatal]
  - Dehydration [Recovering/Resolving]
  - Renal failure [Recovering/Resolving]
  - Decreased appetite [Recovering/Resolving]
  - Hypothyroidism [Recovering/Resolving]
